FAERS Safety Report 12777003 (Version 1)
Quarter: 2016Q3

REPORT INFORMATION
  Report Type: Spontaneous
  Country: US (occurrence: US)
  Receive Date: 20160923
  Receipt Date: 20160923
  Transmission Date: 20161109
  Serious: No
  Sender: FDA-Public Use
  Company Number: US-ASTRAZENECA-2016SF00749

PATIENT
  Age: 887 Month
  Sex: Female
  Weight: 102.1 kg

DRUGS (2)
  1. SYNTHROID [Concomitant]
     Active Substance: LEVOTHYROXINE SODIUM
     Indication: THYROID DISORDER
     Route: 048
     Dates: start: 1986
  2. PULMICORT FLEXHALER [Suspect]
     Active Substance: BUDESONIDE
     Indication: BRONCHIAL DISORDER
     Dosage: 180 UG,1 PUFF TWICE A DAY
     Route: 055
     Dates: start: 201503

REACTIONS (7)
  - Anxiety [Unknown]
  - Arthropod bite [Unknown]
  - Product use issue [Unknown]
  - Pollakiuria [Unknown]
  - Off label use [Unknown]
  - Libido increased [Unknown]
  - Nasopharyngitis [Unknown]

NARRATIVE: CASE EVENT DATE: 201503
